FAERS Safety Report 7998050-1 (Version None)
Quarter: 2011Q4

REPORT INFORMATION
  Report Type: 
  Country: None (occurrence: None)
  Receive Date: 20111221
  Receipt Date: 20101213
  Transmission Date: 20120403
  Serious: No
  Sender: FDA-Public Use
  Company Number: US-GLAXOSMITHKLINE-A0899552A

PATIENT
  Age: 56 Year
  Sex: Male
  Weight: 69.1 kg

DRUGS (4)
  1. PROPECIA [Concomitant]
  2. AMITRIPTYLINE HCL [Concomitant]
  3. FOSAMAX [Concomitant]
  4. LOVAZA [Suspect]
     Indication: BLOOD CHOLESTEROL
     Dosage: 2MG PER DAY
     Route: 048
     Dates: end: 20101209

REACTIONS (2)
  - BLOOD CHOLESTEROL INCREASED [None]
  - LOW DENSITY LIPOPROTEIN INCREASED [None]
